FAERS Safety Report 8621712-X (Version None)
Quarter: 2012Q3

REPORT INFORMATION
  Report Type: 
  Country: None (occurrence: None)
  Receive Date: 20120821
  Receipt Date: 20120821
  Transmission Date: 20120928
  Serious: Yes (Other)
  Sender: FDA-Public Use
  Company Number: None

PATIENT

DRUGS (1)
  1. ESCITALOPRAM [Suspect]

REACTIONS (6)
  - DRUG INEFFECTIVE [None]
  - ANXIETY [None]
  - DEPRESSION [None]
  - PRODUCT SUBSTITUTION ISSUE [None]
  - CONDITION AGGRAVATED [None]
  - EMOTIONAL DISTRESS [None]
